FAERS Safety Report 4440657-2 (Version None)
Quarter: 2004Q3

REPORT INFORMATION
  Report Type: 
  Country: None (occurrence: None)
  Receive Date: 20040901
  Receipt Date: 20040901
  Transmission Date: 20050211
  Serious: Yes (Hospitalization)
  Sender: FDA-Public Use
  Company Number: None

PATIENT
  Sex: Female
  Weight: 58.514 kg

DRUGS (8)
  1. PAXIL CR [Suspect]
     Indication: DEPRESSION
     Dosage: 12.5 MG PO QD [RECENTLY STARTED PRIOR TO ADMISSION]
     Route: 048
  2. PROCARDIA [Concomitant]
  3. AMIODARONE [Concomitant]
  4. SYNTHROID [Concomitant]
  5. ZOCOR [Concomitant]
  6. ECOTRIN [Concomitant]
  7. ALEVE [Concomitant]
  8. CALCIUM [Concomitant]

REACTIONS (1)
  - ASTHENIA [None]
